FAERS Safety Report 9970921 (Version 2)
Quarter: 2014Q1

REPORT INFORMATION
  Report Type: Report from Study
  Country: US (occurrence: US)
  Receive Date: 20140306
  Receipt Date: 20140306
  Transmission Date: 20141002
  Serious: No
  Sender: FDA-Public Use
  Company Number: US-ABBVIE-13P-163-1070064-00

PATIENT
  Age: 60 Year
  Sex: Female
  Weight: 108.96 kg

DRUGS (6)
  1. HUMIRA [Suspect]
     Indication: RHEUMATOID ARTHRITIS
     Dates: start: 2012, end: 201301
  2. HUMIRA [Suspect]
     Dates: start: 201303
  3. TRAMADOL [Concomitant]
     Indication: RHEUMATOID ARTHRITIS
  4. FOLIC ACID [Concomitant]
     Indication: VITAMIN SUPPLEMENTATION
  5. NEURONTIN [Concomitant]
     Indication: RHEUMATOID ARTHRITIS
  6. AZATHIOPRINE [Concomitant]
     Indication: RHEUMATOID ARTHRITIS

REACTIONS (3)
  - Gait disturbance [Not Recovered/Not Resolved]
  - Arthralgia [Not Recovered/Not Resolved]
  - Arthritis [Recovering/Resolving]
